FAERS Safety Report 10966421 (Version 1)
Quarter: 2015Q1

REPORT INFORMATION
  Report Type: Spontaneous
  Country: US (occurrence: None)
  Receive Date: 20150226
  Receipt Date: 20150226
  Transmission Date: 20150721
  Serious: No
  Sender: FDA-Public Use
  Company Number: TPA2010A04923

PATIENT
  Age: 79 Year
  Sex: Male
  Weight: 72.58 kg

DRUGS (6)
  1. BENURYL (PROBENECID) [Concomitant]
  2. URIC ACID BALANCE (ALL OTHER THERAPEUTIC PRODUCTS) [Concomitant]
  3. ULORIC [Suspect]
     Active Substance: FEBUXOSTAT
     Indication: GOUT
     Route: 048
     Dates: start: 20100708
  4. VITAMIN B12 [Concomitant]
     Active Substance: CYANOCOBALAMIN
  5. VITAMIN C [Concomitant]
     Active Substance: ASCORBIC ACID
  6. FOLIC ACID (FOLIC ACID) [Concomitant]
     Active Substance: FOLIC ACID

REACTIONS (3)
  - Arthralgia [None]
  - Oedema peripheral [None]
  - Joint swelling [None]

NARRATIVE: CASE EVENT DATE: 20100713
